FAERS Safety Report 22156785 (Version 1)
Quarter: 2023Q1

REPORT INFORMATION
  Report Type: Spontaneous
  Country: ES (occurrence: ES)
  Receive Date: 20230330
  Receipt Date: 20230330
  Transmission Date: 20230417
  Serious: Yes (Other)
  Sender: FDA-Public Use
  Company Number: ES-TAKEDA-2023TUS030423

PATIENT
  Age: 48 Year
  Sex: Male

DRUGS (1)
  1. PANTOPRAZOLE [Suspect]
     Active Substance: PANTOPRAZOLE
     Indication: Gastrooesophageal reflux disease
     Dosage: 20 MILLIGRAM, Q12H
     Route: 065
     Dates: start: 20201109, end: 20201130

REACTIONS (1)
  - Dizziness postural [Unknown]

NARRATIVE: CASE EVENT DATE: 20201109
